FAERS Safety Report 9775502 (Version 1)
Quarter: 2013Q4

REPORT INFORMATION
  Report Type: Spontaneous
  Country: TR (occurrence: TR)
  Receive Date: 20131220
  Receipt Date: 20131220
  Transmission Date: 20140711
  Serious: Yes (Other)
  Sender: FDA-Public Use
  Company Number: TR-PFIZER INC-2013363498

PATIENT
  Age: 6 Year
  Sex: Female

DRUGS (1)
  1. GENOTROPIN GOQUICK [Suspect]
     Indication: GROWTH HORMONE DEFICIENCY
     Dosage: 3.15 MG, WEEKLY

REACTIONS (2)
  - Acute tonsillitis [Unknown]
  - Pyrexia [Unknown]
